FAERS Safety Report 17712825 (Version 1)
Quarter: 2020Q2

REPORT INFORMATION
  Report Type: Report from Study
  Country: SI (occurrence: SI)
  Receive Date: 20200427
  Receipt Date: 20200427
  Transmission Date: 20200714
  Serious: Yes (Death, Life-Threatening, Hospitalization)
  Sender: FDA-Public Use
  Company Number: SI-JNJFOC-20181001246

PATIENT
  Age: 83 Year
  Sex: Female

DRUGS (8)
  1. DIUVER [Concomitant]
     Active Substance: TORSEMIDE
     Dosage: UNK
  2. ATORIS [Concomitant]
     Active Substance: ATORVASTATIN CALCIUM
     Dosage: UNK
  3. CONCOR [Concomitant]
     Active Substance: BISOPROLOL FUMARATE
     Dosage: UNK
  4. RIVAROXABAN [Suspect]
     Active Substance: RIVAROXABAN
     Indication: ATRIAL FIBRILLATION
     Route: 048
     Dates: start: 20140226
  5. TENZOPRIL [Concomitant]
     Active Substance: ZOFENOPRIL
     Dosage: UNK
  6. TERTENSIF [Concomitant]
     Active Substance: INDAPAMIDE
     Dosage: UNK
  7. METFORMIN HYDROCHLORIDE. [Concomitant]
     Active Substance: METFORMIN HYDROCHLORIDE
     Dosage: UNK
  8. LERCAPRESS                         /01366402/ [Concomitant]
     Active Substance: LERCANIDIPINE HYDROCHLORIDE
     Dosage: UNK

REACTIONS (6)
  - Melaena [Fatal]
  - Cardiac arrest [Unknown]
  - Respiratory arrest [Unknown]
  - Mallory-Weiss syndrome [Fatal]
  - Shock haemorrhagic [Fatal]
  - Haematemesis [Fatal]

NARRATIVE: CASE EVENT DATE: 20150701
